FAERS Safety Report 23456012 (Version 1)
Quarter: 2024Q1

REPORT INFORMATION
  Report Type: Spontaneous
  Country: US (occurrence: None)
  Receive Date: 20240129
  Receipt Date: 20240129
  Transmission Date: 20240409
  Serious: Yes (Other)
  Sender: FDA-Public Use
  Company Number: None

PATIENT
  Age: 69 Year
  Sex: Female
  Weight: 77.4 kg

DRUGS (23)
  1. ALPHAGAN P [Suspect]
     Active Substance: BRIMONIDINE TARTRATE
     Indication: Glaucoma
     Dosage: FREQUENCY : 3 TIMES A DAY;?
     Route: 047
     Dates: start: 20230430, end: 20231228
  2. NORVASC [Concomitant]
     Active Substance: AMLODIPINE BESYLATE
  3. NORVASC [Concomitant]
     Active Substance: AMLODIPINE BESYLATE
  4. Esetimbie (Zetia) [Concomitant]
  5. HYDROCHLOROTHIAZIDE [Concomitant]
     Active Substance: HYDROCHLOROTHIAZIDE
  6. Humalog Irbesartan/(Avapro) [Concomitant]
  7. Irbesartan/(Avapro) [Concomitant]
  8. METOPROLOL SUCCINATE [Concomitant]
     Active Substance: METOPROLOL SUCCINATE
  9. Potassium Chloride ER M [Concomitant]
  10. SYNTHROID [Concomitant]
     Active Substance: LEVOTHYROXINE SODIUM
  11. LUMIGAN [Concomitant]
     Active Substance: BIMATOPROST
  12. ALPHAGAN P [Concomitant]
     Active Substance: BRIMONIDINE TARTRATE
  13. DEVICE\INSULIN NOS [Concomitant]
     Active Substance: DEVICE\INSULIN NOS
  14. Dexcom G6 [Concomitant]
  15. CALCIUM [Concomitant]
     Active Substance: CALCIUM
  16. Glucosamine/Vitamin D [Concomitant]
  17. MAGNESIUM [Concomitant]
     Active Substance: MAGNESIUM
  18. VITAMIN D [Concomitant]
     Active Substance: VITAMIN D NOS
  19. VITAMIN E [Concomitant]
     Active Substance: .ALPHA.-TOCOPHEROL
  20. PROBIOTICS NOS [Concomitant]
     Active Substance: PROBIOTICS NOS
  21. Nexxum [Concomitant]
  22. REFRESH SOLUTION NOS [Concomitant]
     Active Substance: CARBOXYMETHYLCELLULOSE SODIUM\GLYCERIN
  23. ASPIRIN [Concomitant]
     Active Substance: ASPIRIN

REACTIONS (4)
  - Eyelid irritation [None]
  - Eyelids pruritus [None]
  - Erythema of eyelid [None]
  - Blister [None]

NARRATIVE: CASE EVENT DATE: 20231215
